FAERS Safety Report 26067969 (Version 1)
Quarter: 2025Q4

REPORT INFORMATION
  Report Type: Spontaneous
  Country: US (occurrence: None)
  Receive Date: 20251120
  Receipt Date: 20251120
  Transmission Date: 20260117
  Serious: No
  Sender: ENCUBE ETHICALS PVT. LTD.
  Company Number: US-Encube-002598

PATIENT
  Age: 90 Year
  Sex: Male

DRUGS (2)
  1. DICLOFENAC SODIUM [Suspect]
     Active Substance: DICLOFENAC SODIUM
     Indication: Back pain
     Dosage: USED A TWO INCH AMOUNT
  2. DICLOFENAC SODIUM [Suspect]
     Active Substance: DICLOFENAC SODIUM
     Indication: Arthritis
     Dosage: USED A TWO INCH AMOUNT

REACTIONS (8)
  - Malaise [Recovering/Resolving]
  - Tremor [Recovering/Resolving]
  - Drug hypersensitivity [Unknown]
  - Pain [Recovering/Resolving]
  - Influenza like illness [Recovering/Resolving]
  - Discomfort [Recovering/Resolving]
  - Product use in unapproved indication [Unknown]
  - Product use issue [Unknown]
